FAERS Safety Report 5624935-7 (Version None)
Quarter: 2008Q1

REPORT INFORMATION
  Report Type: 
  Country: None (occurrence: None)
  Receive Date: 20080213
  Receipt Date: 20080201
  Transmission Date: 20080703
  Serious: Yes (Other)
  Sender: FDA-Public Use
  Company Number: US-SANOFI-SYNTHELABO-A03200800103

PATIENT
  Sex: Male

DRUGS (6)
  1. AMBIEN [Suspect]
     Indication: SLEEP DISORDER
     Route: 048
     Dates: start: 20050101
  2. AMBIEN [Suspect]
     Route: 048
  3. AMBIEN [Suspect]
     Dosage: 8-10 TABLETS OF ZOLPIDEM A DAY
     Route: 048
     Dates: end: 20070610
  4. ZOLPIDEM GENERIC [Suspect]
     Indication: SLEEP DISORDER
     Dosage: 8-10 TABLETS A DAY
     Route: 048
     Dates: end: 20070101
  5. AMBIEN CR [Suspect]
     Indication: SLEEP DISORDER
     Dosage: 8 TO 10 TABLETS A DAY
     Route: 048
     Dates: end: 20070101
  6. AMBIEN CR [Suspect]
     Dosage: 8-10 TABLETS A DAY
     Route: 048
     Dates: end: 20070101

REACTIONS (7)
  - AMNESIA [None]
  - CONTUSION [None]
  - DRUG ABUSE [None]
  - DRUG DEPENDENCE [None]
  - DRUG TOLERANCE INCREASED [None]
  - ROAD TRAFFIC ACCIDENT [None]
  - SOMNAMBULISM [None]
